FAERS Safety Report 4300194-2 (Version None)
Quarter: 2004Q1

REPORT INFORMATION
  Report Type: 
  Country: None (occurrence: None)
  Receive Date: 20040218
  Receipt Date: 20040205
  Transmission Date: 20041129
  Serious: Yes (Other)
  Sender: FDA-Public Use
  Company Number: 2003036100

PATIENT
  Age: 64 Year
  Sex: Male
  Weight: 72 kg

DRUGS (3)
  1. NEURONTIN [Suspect]
     Indication: POST HERPETIC NEURALGIA
     Dosage: 900 MG (DAILY), ORAL
     Route: 048
     Dates: start: 20030601
  2. CARBAMAZEPINE [Suspect]
     Indication: NEURALGIA
     Dosage: 400 MG (DAILY)
  3. CHLORAMBUCIL (CHLORAMBUCIL) [Suspect]
     Indication: ILL-DEFINED DISORDER

REACTIONS (9)
  - ALLODYNIA [None]
  - BURNING SENSATION [None]
  - CHRONIC LYMPHOCYTIC LEUKAEMIA [None]
  - CONDITION AGGRAVATED [None]
  - DRUG INEFFECTIVE [None]
  - DRUG INTERACTION [None]
  - PARAESTHESIA [None]
  - POST HERPETIC NEURALGIA [None]
  - URTICARIA [None]
